FAERS Safety Report 25289181 (Version 3)
Quarter: 2025Q3

REPORT INFORMATION
  Report Type: Spontaneous
  Country: EU (occurrence: EU)
  Receive Date: 20250509
  Receipt Date: 20250717
  Transmission Date: 20251020
  Serious: Yes (Other)
  Sender: EISAI
  Company Number: None

PATIENT
  Age: 75 Year
  Sex: Male
  Weight: 48 kg

DRUGS (2)
  1. LENVATINIB [Suspect]
     Active Substance: LENVATINIB
     Indication: Renal cell carcinoma
     Dates: start: 20250402
  2. LACTULOSE [Concomitant]
     Active Substance: LACTULOSE
     Indication: Constipation

REACTIONS (1)
  - Stomatitis [Recovered/Resolved]

NARRATIVE: CASE EVENT DATE: 20250421
